FAERS Safety Report 18634367 (Version 1)
Quarter: 2020Q4

REPORT INFORMATION
  Report Type: Spontaneous
  Country: ES (occurrence: ES)
  Receive Date: 20201218
  Receipt Date: 20201218
  Transmission Date: 20210114
  Serious: Yes (Hospitalization)
  Sender: FDA-Public Use
  Company Number: ES-TEVA-2020-ES-1858783

PATIENT
  Age: 79 Year
  Sex: Male

DRUGS (7)
  1. ATORVASTATINA (7400A) [Suspect]
     Active Substance: ATORVASTATIN
     Dosage: UNIT DOSE :  40 MG
     Route: 048
     Dates: start: 20180810, end: 20200727
  2. OLMESARTAN MEDOXOMILO (9696NQ) [Suspect]
     Active Substance: OLMESARTAN MEDOXOMIL
     Dosage: UNIT DOSE :  40 MG
     Route: 048
     Dates: start: 201809
  3. BISOPROLOL (2328A) [Concomitant]
     Active Substance: BISOPROLOL
     Dosage: UNIT DOSE :  2.5 MG
     Route: 048
     Dates: start: 201904
  4. ALOPURINOL (318A) [Suspect]
     Active Substance: ALLOPURINOL
     Indication: HYPERURICAEMIA
     Dosage: UNIT DOSE :  100 MG
     Route: 048
     Dates: start: 201809, end: 20200818
  5. OMEPRAZOL (2141A) [Concomitant]
     Active Substance: OMEPRAZOLE
     Dosage: UNIT DOSE :  20 MG
     Route: 048
     Dates: start: 201812
  6. AMLODIPINO (2503A) [Suspect]
     Active Substance: AMLODIPINE BESYLATE
     Dosage: UNIT DOSE :  2.5 MG
     Route: 048
     Dates: start: 201809, end: 20201007
  7. TROMALYT [Suspect]
     Active Substance: ASPIRIN
     Dosage: UNIT DOSE :  300 MG
     Route: 048
     Dates: start: 201902, end: 20201007

REACTIONS (2)
  - Hyperbilirubinaemia [Recovering/Resolving]
  - Hepatitis [Recovering/Resolving]

NARRATIVE: CASE EVENT DATE: 202007
